FAERS Safety Report 7561359-X (Version None)
Quarter: 2011Q2

REPORT INFORMATION
  Report Type: 
  Country: None (occurrence: None)
  Receive Date: 20110621
  Receipt Date: 20100907
  Transmission Date: 20111010
  Serious: No
  Sender: FDA-Public Use
  Company Number: US-ASTRAZENECA-2010SE32428

PATIENT
  Sex: Female

DRUGS (4)
  1. SPIRIVA [Concomitant]
  2. SINGULAIR [Concomitant]
  3. ALBUTEROL SULFATE AUTOHALER [Concomitant]
  4. PULMICORT FLEXHALER [Suspect]
     Dosage: 180 MCG, 2 PUFFS QD
     Route: 055

REACTIONS (2)
  - DRUG INEFFECTIVE [None]
  - MALAISE [None]
